FAERS Safety Report 6759775-9 (Version None)
Quarter: 2010Q2

REPORT INFORMATION
  Report Type: 
  Country: None (occurrence: None)
  Receive Date: 20100604
  Receipt Date: 20100521
  Transmission Date: 20101027
  Serious: Yes (Other)
  Sender: FDA-Public Use
  Company Number: DSJ-2010-08341

PATIENT
  Age: 40 Year
  Sex: Male

DRUGS (2)
  1. BENICAR [Suspect]
     Indication: HYPERTENSION
     Dosage: 20 MG (1 IN 1 D), PER ORAL; 40 MG (20 MG, 2 IN 1 D), PER ORAL
     Route: 048
     Dates: start: 20080101
  2. BENICAR [Suspect]
     Indication: HYPERTENSION
     Dosage: 20 MG (1 IN 1 D), PER ORAL; 40 MG (20 MG, 2 IN 1 D), PER ORAL
     Route: 048
     Dates: start: 20100501

REACTIONS (5)
  - BLOOD PRESSURE INCREASED [None]
  - DRUG INEFFECTIVE [None]
  - HEADACHE [None]
  - PHARYNGITIS [None]
  - THROMBOCYTOPENIA [None]
